FAERS Safety Report 8982540 (Version 1)
Quarter: 2012Q4

REPORT INFORMATION
  Report Type: 
  Country: US (occurrence: US)
  Receive Date: 20121222
  Receipt Date: 20121222
  Transmission Date: 20130627
  Serious: No
  Sender: FDA-Public Use
  Company Number: US-ASTRAZENECA-2012SE87930

PATIENT
  Age: 79 Year
  Sex: Male
  Weight: 88.5 kg

DRUGS (1)
  1. NEXIUM EERD [Suspect]
     Indication: GASTROINTESTINAL HAEMORRHAGE
     Route: 048
     Dates: start: 20121011

REACTIONS (3)
  - Bowel movement irregularity [Unknown]
  - Abdominal pain upper [Unknown]
  - Off label use [Unknown]
